FAERS Safety Report 15762698 (Version 4)
Quarter: 2019Q1

REPORT INFORMATION
  Report Type: Spontaneous
  Country: US (occurrence: US)
  Receive Date: 20181226
  Receipt Date: 20190201
  Transmission Date: 20190417
  Serious: Yes (Other)
  Sender: FDA-Public Use
  Company Number: US-PFIZER INC-2018524355

PATIENT
  Age: 55 Year
  Sex: Male

DRUGS (43)
  1. ETBX-051 [Concomitant]
     Indication: COLORECTAL CANCER
     Dosage: UNK
     Route: 065
     Dates: start: 20181015
  2. CYCLOPHOSPHAMIDE. [Concomitant]
     Active Substance: CYCLOPHOSPHAMIDE
     Dosage: 25 MG, CYCLIC (LAST DOSE PRIOR TO SAE ONSET, 25MG, CYCLE 2)
     Route: 065
     Dates: start: 20181109
  3. ELOXATIN [Concomitant]
     Active Substance: OXALIPLATIN
     Indication: COLORECTAL CANCER
     Dosage: UNK
     Route: 065
     Dates: start: 20181008
  4. PROCHLORPERAZINE. [Concomitant]
     Active Substance: PROCHLORPERAZINE
     Dosage: UNK
  5. DIPHENHYDRAMINE. [Concomitant]
     Active Substance: DIPHENHYDRAMINE
     Dosage: UNK
  6. LEVOFLOXACIN. [Concomitant]
     Active Substance: LEVOFLOXACIN
     Dosage: UNK
  7. ETBX-021 [Concomitant]
     Indication: COLORECTAL CANCER
     Dosage: UNK UNK, CYCLIC (FIRST AND ONLY DOSE PRIOR TO SAE ONSET, 1X10^11 VIAL, CYCLE 20)
     Route: 065
     Dates: start: 20181102
  8. GI 6301 [Concomitant]
     Dosage: UNK UNK, CYCLIC (LAST DOSE PRIOR TO SAE ONSET 40YU, CYCLE 2)
     Route: 065
     Dates: start: 20181102
  9. CYCLOPHOSPHAMIDE. [Concomitant]
     Active Substance: CYCLOPHOSPHAMIDE
     Indication: COLORECTAL CANCER
     Dosage: UNK
     Route: 065
     Dates: start: 20181008
  10. CLOBETASOL [Concomitant]
     Active Substance: CLOBETASOL
     Dosage: UNK
  11. AVELUMAB [Concomitant]
     Active Substance: AVELUMAB
     Indication: COLORECTAL CANCER
     Dosage: UNK
     Route: 065
     Dates: start: 20181016
  12. ALT-803 [Concomitant]
     Active Substance: INVESTIGATIONAL PRODUCT
     Dosage: 1209 MG, CYCLIC (LAST DOSE PRIOR TO SAE ONSET, 1209 MG, CYCLE 2)
     Route: 065
     Dates: start: 20181106
  13. NK-92 HANK [Concomitant]
     Dosage: UNK UNK, CYCLIC (LAST DOSE PRIOR TO SAE ONSET,2X10^9 CELLS, CYCLE 2)
     Route: 065
     Dates: start: 20181106
  14. ETBX-011 [Concomitant]
     Active Substance: INVESTIGATIONAL PRODUCT
     Dosage: UNK UNK, CYCLIC (LAST DOSE PRIOR TO SAE ONSET, 1X10^11 VIAL, CYCLE 2))
     Route: 065
     Dates: start: 20181102
  15. ERBITUX [Concomitant]
     Active Substance: CETUXIMAB
     Indication: COLORECTAL CANCER
     Dosage: 518 MG, CYCLIC (FIRST AND ONLY DOSE PRIOR TO SAE ONSET, 518MG, CYCLE 2)
     Route: 065
     Dates: start: 20181023
  16. ACETAMINOPHEN;HYDROCODONE [Concomitant]
     Active Substance: ACETAMINOPHEN\HYDROCODONE
     Dosage: UNK
  17. TPN ELECTROLYTES [Suspect]
     Active Substance: CALCIUM CHLORIDE\MAGNESIUM CHLORIDE\POTASSIUM CHLORIDE\SODIUM ACETATE ANHYDROUS\SODIUM CHLORIDE
     Dosage: UNK
     Dates: start: 20181109
  18. ABRAXANE [Concomitant]
     Active Substance: PACLITAXEL
     Indication: COLORECTAL CANCER
     Dosage: UNK
     Route: 065
     Dates: start: 20181008
  19. IRON [Concomitant]
     Active Substance: IRON
     Dosage: UNK
  20. CANNABIDIOL [Concomitant]
     Active Substance: CANNABIDIOL
     Dosage: UNK
  21. LEUCOVORIN [CALCIUM FOLINATE] [Concomitant]
     Active Substance: LEUCOVORIN
     Indication: COLORECTAL CANCER
     Dosage: 41 MG, CYCLIC (FIRST AND ONLY DOSE PRIOR TO SAE ONSET, 41 MG, CYCLE 2)
     Route: 065
     Dates: start: 20181008
  22. ETBX-011 [Concomitant]
     Active Substance: INVESTIGATIONAL PRODUCT
     Indication: COLORECTAL CANCER
     Dosage: UNK
     Route: 065
     Dates: start: 20181015
  23. ETBX-051 [Concomitant]
     Dosage: UNK UNK, CYCLIC (LAST DOSE PRIOR TO SAE ONSET, 1X10^11 VIAL, CYCLE 2)
     Route: 065
     Dates: start: 20181102
  24. GI-6207 [Concomitant]
     Dosage: UNK UNK, CYCLIC (LAST DOSE PRIOR TO SAE ONSET 40YU, CYCLE 2)
     Route: 065
     Dates: start: 20181102
  25. GI 6301 [Concomitant]
     Indication: COLORECTAL CANCER
     Dosage: UNK
     Route: 065
     Dates: start: 20181015
  26. IBUPROFEN. [Concomitant]
     Active Substance: IBUPROFEN
     Dosage: UNK
  27. VITAMIN B12 [MECOBALAMIN] [Concomitant]
     Dosage: UNK
  28. DIPHENHYDRAMINE HYDROCHLORIDE/LIDOCAINE/NYSTATIN [Concomitant]
     Dosage: UNK
  29. NK-92 HANK [Concomitant]
     Indication: COLORECTAL CANCER
     Dosage: UNK
     Route: 065
     Dates: start: 20181016
  30. ALDOXORUBICIN [Concomitant]
     Active Substance: DOXORUBICIN
     Dosage: 199 MG, CYCLIC (LAST DOSE PRIOR TO SAE ONSET, 199MG, CYCLE 2))
     Route: 065
     Dates: start: 20181105
  31. ETBX-061 [Concomitant]
     Indication: COLORECTAL CANCER
     Dosage: UNK
     Route: 065
     Dates: start: 20181015
  32. ETBX-061 [Concomitant]
     Dosage: UNK UNK, CYCLIC (LAST DOSE PRIOR TO SAE ONSET, 1X10^11 VIAL, CYCLE 2)
     Route: 065
     Dates: start: 20181102
  33. GI-6207 [Concomitant]
     Indication: COLORECTAL CANCER
     Dosage: UNK
     Route: 065
     Dates: start: 20181015
  34. FLUOROURACIL. [Concomitant]
     Active Substance: FLUOROURACIL
     Indication: COLORECTAL CANCER
     Dosage: 3105 MG, CYCLIC (FIRST AND ONLY DOSE PRIOR TO SAE ONSET, 3105 MG, CYCLE 2)
     Route: 065
     Dates: start: 20181008
  35. ELOXATIN [Concomitant]
     Active Substance: OXALIPLATIN
     Dosage: 80 MG, CYCLIC (LAST DOSE PRIOR TO SAE ONSET, 80 MG, CYCLE 2)
     Route: 065
     Dates: start: 20181029
  36. ALT-803 [Concomitant]
     Active Substance: INVESTIGATIONAL PRODUCT
     Indication: COLORECTAL CANCER
     Dosage: UNK
     Route: 065
     Dates: start: 20181016
  37. ERBITUX [Concomitant]
     Active Substance: CETUXIMAB
     Dosage: UNK
  38. ABRAXANE [Concomitant]
     Active Substance: PACLITAXEL
     Dosage: 125 MG, CYCLIC (LAST DOSE PRIOR TO SAE ONSET, 125 MG, CYCLE 2)
     Route: 065
     Dates: start: 20181029
  39. MEPERIDINE [Concomitant]
     Active Substance: MEPERIDINE
     Dosage: UNK
  40. AVELUMAB [Concomitant]
     Active Substance: AVELUMAB
     Dosage: 818 MG, CYCLIC (LAST DOSE PRIOR TO SAE ONSET, 818 MG, CYCLE 2)
     Route: 065
     Dates: start: 20181106
  41. ALDOXORUBICIN [Concomitant]
     Active Substance: DOXORUBICIN
     Indication: COLORECTAL CANCER
     Dosage: UNK
     Route: 065
     Dates: start: 20181015
  42. ONDANSETRON [Concomitant]
     Active Substance: ONDANSETRON
     Dosage: UNK
  43. MAGNESIUM [Concomitant]
     Active Substance: MAGNESIUM
     Dosage: UNK

REACTIONS (3)
  - Nausea [Unknown]
  - Failure to thrive [Unknown]
  - Vomiting [Unknown]

NARRATIVE: CASE EVENT DATE: 20181109
